FAERS Safety Report 8425514-9 (Version None)
Quarter: 2012Q2

REPORT INFORMATION
  Report Type: 
  Country: None (occurrence: None)
  Receive Date: 20120611
  Receipt Date: 20120531
  Transmission Date: 20120825
  Serious: Yes (Hospitalization)
  Sender: FDA-Public Use
  Company Number: JP-VERTEX PHARMACEUTICALS INC.-AE-2012-007782

PATIENT
  Age: 51 Year
  Sex: Male

DRUGS (11)
  1. REBETOL [Concomitant]
     Route: 048
     Dates: start: 20120516, end: 20120522
  2. REBETOL [Concomitant]
     Indication: HEPATITIS C
     Route: 048
     Dates: start: 20120418, end: 20120501
  3. REBETOL [Concomitant]
     Route: 048
     Dates: start: 20120526, end: 20120530
  4. NORVASC [Concomitant]
     Route: 048
     Dates: start: 20120418
  5. REBETOL [Concomitant]
     Route: 048
     Dates: start: 20120523, end: 20120525
  6. TELAVIC (TELAPREVIR) [Suspect]
     Indication: HEPATITIS C
     Route: 048
     Dates: start: 20120418, end: 20120522
  7. TELAVIC (TELAPREVIR) [Suspect]
     Route: 048
     Dates: start: 20120526, end: 20120530
  8. PEG-INTRON [Concomitant]
     Indication: HEPATITIS C
     Route: 051
     Dates: start: 20120418
  9. OLMESARTAN MEDOXOMIL [Concomitant]
     Route: 048
  10. REBETOL [Concomitant]
     Route: 048
     Dates: start: 20120502, end: 20120515
  11. REBETOL [Concomitant]
     Route: 048
     Dates: start: 20120531

REACTIONS (1)
  - RENAL DISORDER [None]
